FAERS Safety Report 24256861 (Version 1)
Quarter: 2024Q3

REPORT INFORMATION
  Report Type: Spontaneous
  Country: US (occurrence: US)
  Receive Date: 20240828
  Receipt Date: 20240828
  Transmission Date: 20241017
  Serious: No
  Sender: TEVA
  Company Number: US-TEVA-VS-3232025

PATIENT
  Age: 40 Year
  Sex: Male

DRUGS (2)
  1. UZEDY [Suspect]
     Active Substance: RISPERIDONE
     Indication: Schizoaffective disorder
     Dosage: 100/0.28 MG/ML
     Route: 065
  2. UZEDY [Suspect]
     Active Substance: RISPERIDONE

REACTIONS (2)
  - Drooling [Unknown]
  - Off label use [Unknown]
